FAERS Safety Report 8619077 (Version 2)
Quarter: 2012Q4

REPORT INFORMATION
  Report Type: 
  Country: CA (occurrence: CA)
  Receive Date: 20120618
  Receipt Date: 20120903
  Transmission Date: 20130627
  Serious: Yes (Life-Threatening, Hospitalization, Other)
  Sender: FDA-Public Use
  Company Number: CA-BRISTOL-MYERS SQUIBB COMPANY-16673402

PATIENT
  Age: 77 Year
  Sex: Female

DRUGS (4)
  1. DASATINIB [Suspect]
     Indication: CHRONIC MYELOID LEUKAEMIA
     Dates: start: 20110922
  2. L-THYROXINE [Concomitant]
  3. VITAMIN D [Concomitant]
  4. PROBIOTICA [Concomitant]

REACTIONS (3)
  - Pericardial effusion [Recovering/Resolving]
  - Cardiac arrest [Recovering/Resolving]
  - Pleural effusion [Recovering/Resolving]
